FAERS Safety Report 7459971-1 (Version None)
Quarter: 2011Q2

REPORT INFORMATION
  Report Type: 
  Country: None (occurrence: None)
  Receive Date: 20110505
  Receipt Date: 20110428
  Transmission Date: 20111010
  Serious: No
  Sender: FDA-Public Use
  Company Number: US-PFIZER INC-2011092690

PATIENT
  Sex: Male

DRUGS (2)
  1. ALPRAZOLAM [Suspect]
     Dosage: 1 MG, 3X/DAY
  2. ALPRAZOLAM [Suspect]
     Dosage: 2 MG, BREAKING IN HALF

REACTIONS (1)
  - FEELING ABNORMAL [None]
